FAERS Safety Report 6773456-7 (Version None)
Quarter: 2010Q2

REPORT INFORMATION
  Report Type: 
  Country: None (occurrence: None)
  Receive Date: 20100616
  Receipt Date: 20100608
  Transmission Date: 20101027
  Serious: Yes (Hospitalization, Other)
  Sender: FDA-Public Use
  Company Number: US-AMGEN-QUU412565

PATIENT
  Sex: Female

DRUGS (1)
  1. ENBREL [Suspect]
     Indication: PSORIASIS
     Route: 058
     Dates: start: 20070506, end: 20070920

REACTIONS (5)
  - BACK PAIN [None]
  - DYSKINESIA [None]
  - IMMUNE SYSTEM DISORDER [None]
  - MEMORY IMPAIRMENT [None]
  - PHYSICAL DISABILITY [None]
